FAERS Safety Report 8425921-4 (Version None)
Quarter: 2012Q2

REPORT INFORMATION
  Report Type: 
  Country: None (occurrence: None)
  Receive Date: 20120611
  Receipt Date: 20120601
  Transmission Date: 20120825
  Serious: Yes (Hospitalization)
  Sender: FDA-Public Use
  Company Number: JP-ABBOTT-12P-087-0936355-00

PATIENT
  Sex: Female
  Weight: 57 kg

DRUGS (14)
  1. MUCOSOLVAN [Concomitant]
     Indication: PRODUCT USED FOR UNKNOWN INDICATION
     Route: 048
  2. ANTIBIOTICS-RESISTANT LACTIC ACID BACTERIAE [Concomitant]
     Indication: PRODUCT USED FOR UNKNOWN INDICATION
     Route: 048
     Dates: start: 20120131, end: 20120202
  3. CLARITHROMYCIN [Suspect]
     Indication: PRODUCT USED FOR UNKNOWN INDICATION
     Route: 048
     Dates: start: 20120117, end: 20120129
  4. DEXTROMETHORPHAN HYDROBROMIDE HYDRATE + POTASSIUM CRESOL SULFONATE [Concomitant]
     Indication: PRODUCT USED FOR UNKNOWN INDICATION
     Route: 048
  5. BROCIN (CHERRY BARK EXTRACT) [Concomitant]
     Indication: PRODUCT USED FOR UNKNOWN INDICATION
     Route: 048
     Dates: start: 20120117, end: 20120201
  6. KEISHITO (HERBAL MEDICINE) [Concomitant]
     Indication: PRODUCT USED FOR UNKNOWN INDICATION
     Dates: start: 20120131, end: 20120202
  7. APRICOT KERNAL WATER [Concomitant]
     Indication: PRODUCT USED FOR UNKNOWN INDICATION
     Route: 048
     Dates: start: 20120117, end: 20120201
  8. SAIBOKURO (HERBAL MEDICINE) [Concomitant]
     Indication: PRODUCT USED FOR UNKNOWN INDICATION
     Dates: start: 20120123, end: 20120130
  9. KAKKONTOU [Concomitant]
     Indication: PRODUCT USED FOR UNKNOWN INDICATION
     Route: 048
     Dates: start: 20120117, end: 20120121
  10. SENEGA SYRUP [Concomitant]
     Indication: PRODUCT USED FOR UNKNOWN INDICATION
     Route: 048
  11. AVELOX [Concomitant]
     Indication: PRODUCT USED FOR UNKNOWN INDICATION
     Dosage: 400 MG (400 MG, BID)
     Dates: start: 20120131, end: 20120202
  12. MAOTO [Concomitant]
     Indication: PRODUCT USED FOR UNKNOWN INDICATION
     Dates: start: 20120131, end: 20120202
  13. INAVIR (LANINAMIVIR OCTANOETE) [Concomitant]
     Indication: PRODUCT USED FOR UNKNOWN INDICATION
     Dosage: 40 MG (40 MG, BID)
     Dates: start: 20120117, end: 20120117
  14. ACETAMINOPHEN [Concomitant]
     Indication: PRODUCT USED FOR UNKNOWN INDICATION
     Dosage: PRN

REACTIONS (1)
  - DRUG-INDUCED LIVER INJURY [None]
